FAERS Safety Report 7343322-7 (Version None)
Quarter: 2011Q1

REPORT INFORMATION
  Report Type: 
  Country: None (occurrence: None)
  Receive Date: 20110308
  Receipt Date: 20110308
  Transmission Date: 20110831
  Serious: No
  Sender: FDA-Public Use
  Company Number: None

PATIENT
  Age: 60 Year
  Sex: Female
  Weight: 81.1939 kg

DRUGS (1)
  1. AMLODIPINE BESYLATE [Suspect]
     Indication: HYPERTENSION
     Dosage: 5 MG. ONE TABLET/DAY PO
     Route: 048
     Dates: start: 20100701, end: 20101228

REACTIONS (2)
  - APHTHOUS STOMATITIS [None]
  - MEDICATION ERROR [None]
